FAERS Safety Report 6023268-7 (Version None)
Quarter: 2008Q4

REPORT INFORMATION
  Report Type: 
  Country: None (occurrence: None)
  Receive Date: 20081224
  Receipt Date: 20081224
  Transmission Date: 20090506
  Serious: Yes (Other)
  Sender: FDA-Public Use
  Company Number: None

PATIENT
  Age: 23 Year
  Sex: Female
  Weight: 51.7101 kg

DRUGS (1)
  1. MIRENA [Suspect]
     Indication: CONTRACEPTION
     Dates: start: 20071115, end: 20081223

REACTIONS (10)
  - ABDOMINAL PAIN LOWER [None]
  - ACNE [None]
  - AMENORRHOEA [None]
  - COITAL BLEEDING [None]
  - DYSPAREUNIA [None]
  - FEELING ABNORMAL [None]
  - FUNGAL INFECTION [None]
  - MEDICAL DEVICE PAIN [None]
  - MUSCLE SPASMS [None]
  - OVARIAN CYST [None]
